FAERS Safety Report 11291898 (Version 1)
Quarter: 2015Q3

REPORT INFORMATION
  Report Type: Spontaneous
  Country: US (occurrence: None)
  Receive Date: 20150721
  Receipt Date: 20150721
  Transmission Date: 20151125
  Serious: Yes (Hospitalization)
  Sender: FDA-Public Use
  Company Number: None

PATIENT
  Age: 55 Year
  Sex: Male
  Weight: 99.2 kg

DRUGS (2)
  1. NAPROXEN. [Suspect]
     Active Substance: NAPROXEN
     Indication: PSORIATIC ARTHROPATHY
     Route: 048
     Dates: start: 20090722, end: 20150410
  2. IBUPROFEN. [Suspect]
     Active Substance: IBUPROFEN
     Indication: PAIN
     Route: 048
     Dates: start: 20150402, end: 20150409

REACTIONS (9)
  - Dizziness postural [None]
  - Presyncope [None]
  - Haemoglobin decreased [None]
  - Nausea [None]
  - Dyspnoea exertional [None]
  - Vomiting [None]
  - Dyspepsia [None]
  - Gastric haemorrhage [None]
  - Melaena [None]

NARRATIVE: CASE EVENT DATE: 20150409
